FAERS Safety Report 8296616-5 (Version None)
Quarter: 2012Q2

REPORT INFORMATION
  Report Type: 
  Country: None (occurrence: None)
  Receive Date: 20120418
  Receipt Date: 20120418
  Transmission Date: 20120825
  Serious: Yes (Other)
  Sender: FDA-Public Use
  Company Number: None

PATIENT
  Age: 57 Year
  Sex: Female
  Weight: 65.317 kg

DRUGS (10)
  1. TESTOSTERONE [Concomitant]
  2. SINGULAIR [Concomitant]
  3. ASPIRIN [Concomitant]
  4. ISOSORBIDE MONONITRATE [Suspect]
     Indication: ANGINA PECTORIS
     Dosage: 30MG
     Route: 048
  5. XANAX [Concomitant]
  6. ESTROGEN [Concomitant]
  7. PLAVIX [Concomitant]
  8. DESIPRAMINE HCL [Concomitant]
  9. NEXIUM [Concomitant]
  10. TRAMADOL [Concomitant]

REACTIONS (5)
  - VOMITING [None]
  - EYE PAIN [None]
  - HEADACHE [None]
  - DRUG RESISTANCE [None]
  - PHOTOPHOBIA [None]
